FAERS Safety Report 22325078 (Version 1)
Quarter: 2023Q2

REPORT INFORMATION
  Report Type: Spontaneous
  Country: FR (occurrence: FR)
  Receive Date: 20230516
  Receipt Date: 20230516
  Transmission Date: 20230722
  Serious: Yes (Hospitalization)
  Sender: FDA-Public Use
  Company Number: None

PATIENT
  Age: 59 Year
  Sex: Male
  Weight: 86 kg

DRUGS (4)
  1. ATRACURIUM BESYLATE [Suspect]
     Active Substance: ATRACURIUM BESYLATE
     Indication: General anaesthesia
     Dosage: 50 MG, SINGLE
     Route: 042
     Dates: start: 20230320, end: 20230320
  2. REMIFENTANIL HYDROCHLORIDE [Suspect]
     Active Substance: REMIFENTANIL HYDROCHLORIDE
     Indication: General anaesthesia
     Dosage: 0.76 MG, SINGLE
     Route: 042
     Dates: start: 20230320, end: 20230320
  3. KETAMINE [Suspect]
     Active Substance: KETAMINE
     Indication: General anaesthesia
     Dosage: 20 MG, SINGLE
     Route: 042
     Dates: start: 20230320, end: 20230320
  4. PROPOFOL [Suspect]
     Active Substance: PROPOFOL
     Indication: General anaesthesia
     Dosage: 100 MG, SINGLE
     Route: 042
     Dates: start: 20230320, end: 20230320

REACTIONS (1)
  - Extravasation [Recovered/Resolved]

NARRATIVE: CASE EVENT DATE: 20230320
